FAERS Safety Report 4363001-8 (Version None)
Quarter: 2004Q2

REPORT INFORMATION
  Report Type: 
  Country: None (occurrence: None)
  Receive Date: 20040518
  Receipt Date: 20040507
  Transmission Date: 20050107
  Serious: Yes (Hospitalization)
  Sender: FDA-Public Use
  Company Number: 03P-056-0242143-00

PATIENT
  Age: 1 Month
  Sex: Male

DRUGS (1)
  1. DEPAKENE [Suspect]
     Indication: CONVULSION NEONATAL
     Dosage: 35 MG, 2 IN 1 D, ORAL
     Route: 048
     Dates: start: 20030721, end: 20030914

REACTIONS (8)
  - GENERAL PHYSICAL HEALTH DETERIORATION [None]
  - LEUKOCYTOSIS [None]
  - MYELODYSPLASTIC SYNDROME [None]
  - NEONATAL DISORDER [None]
  - NEONATAL INFECTION [None]
  - PALLOR [None]
  - PANCYTOPENIA [None]
  - PLATELET COUNT INCREASED [None]
